FAERS Safety Report 6864744-4 (Version None)
Quarter: 2010Q3

REPORT INFORMATION
  Report Type: 
  Country: None (occurrence: None)
  Receive Date: 20100721
  Receipt Date: 20080405
  Transmission Date: 20110219
  Serious: No
  Sender: FDA-Public Use
  Company Number: US-PFIZER INC-2008031826

PATIENT
  Sex: Female
  Weight: 55.9 kg

DRUGS (6)
  1. CHANTIX [Suspect]
     Indication: SMOKING CESSATION THERAPY
     Dates: start: 20080301
  2. ZOMIG [Concomitant]
     Indication: MIGRAINE
  3. CYMBALTA [Concomitant]
  4. ZYRTEC [Concomitant]
     Indication: HYPERSENSITIVITY
  5. CRESTOR [Concomitant]
  6. ESTRACE [Concomitant]

REACTIONS (2)
  - PRURITUS GENERALISED [None]
  - RASH [None]
